FAERS Safety Report 23850187 (Version 1)
Quarter: 2024Q2

REPORT INFORMATION
  Report Type: Spontaneous
  Country: ES (occurrence: ES)
  Receive Date: 20240513
  Receipt Date: 20240513
  Transmission Date: 20240716
  Serious: Yes (Other)
  Sender: FDA-Public Use
  Company Number: ES-ASTELLAS-2024US005663

PATIENT
  Age: 73 Year
  Sex: Male

DRUGS (4)
  1. TADALAFIL [Suspect]
     Active Substance: TADALAFIL
     Indication: Product used for unknown indication
     Dosage: 5 MILLIGRAM, QD (5 MG, ONCE DAILY (EVERY 24 HRS))
     Route: 065
  2. PADCEV [Suspect]
     Active Substance: ENFORTUMAB VEDOTIN-EJFV
     Indication: Product used for unknown indication
     Dosage: 1 MG/KG, UNKNOWN FREQ (DAY 1)
     Route: 065
     Dates: start: 20240131
  3. PADCEV [Suspect]
     Active Substance: ENFORTUMAB VEDOTIN-EJFV
     Dosage: 1 MG/KG, UNKNOWN FREQ (DAY 8)
     Route: 065
     Dates: start: 20240207, end: 20240207
  4. OMEPRAZOLE [Concomitant]
     Active Substance: DONEPEZIL HYDROCHLORIDE\OMEPRAZOLE\OMEPRAZOLE MAGNESIUM
     Indication: Product used for unknown indication
     Dosage: 20 MG, ONCE DAILY (EVERY 24 HRS)
     Route: 065

REACTIONS (5)
  - Cholestasis [Not Recovered/Not Resolved]
  - Blood bilirubin increased [Recovering/Resolving]
  - Haematuria [Not Recovered/Not Resolved]
  - Underdose [Unknown]
  - Off label use [Unknown]

NARRATIVE: CASE EVENT DATE: 20240131
